FAERS Safety Report 8028517-1 (Version None)
Quarter: 2012Q1

REPORT INFORMATION
  Report Type: 
  Country: None (occurrence: None)
  Receive Date: 20120104
  Receipt Date: 20111223
  Transmission Date: 20120608
  Serious: Yes (Hospitalization)
  Sender: FDA-Public Use
  Company Number: 2011SP060247

PATIENT
  Age: 66 Year
  Sex: Female

DRUGS (8)
  1. INTERFERON (MANUFACTURER (UNKNOWN) (INTERFERON ALFA-2B) [Suspect]
     Indication: HEPATIC CIRRHOSIS
     Dosage: 140 MG;QW; SC
     Dates: start: 20111004
  2. INTERFERON (MANUFACTURER (UNKNOWN) (INTERFERON ALFA-2B) [Suspect]
     Indication: HEPATITIS C
     Dosage: 140 MG;QW; SC
     Dates: start: 20111004
  3. BOCEPREVIR (SCH-503034) [Suspect]
     Indication: HEPATITIS C
     Dosage: 800 MG
     Dates: start: 20111004
  4. BOCEPREVIR (SCH-503034) [Suspect]
     Indication: HEPATIC CIRRHOSIS
     Dosage: 800 MG
     Dates: start: 20111004
  5. INTERFERON (MANUFACTURER (UNKNOWN) (INTERFERON ALFA-2B) [Suspect]
     Indication: HEPATITIS C
     Dosage: 800 MG
     Dates: start: 20111004
  6. INTERFERON (MANUFACTURER (UNKNOWN) (INTERFERON ALFA-2B) [Suspect]
     Indication: HEPATIC CIRRHOSIS
     Dosage: 800 MG
     Dates: start: 20111004
  7. RIBAVIRIN [Suspect]
  8. AUGMENTIN '125' [Concomitant]

REACTIONS (4)
  - BACTERAEMIA [None]
  - ESCHERICHIA INFECTION [None]
  - NEUTROPENIA [None]
  - URINARY TRACT INFECTION [None]
